FAERS Safety Report 11520357 (Version 1)
Quarter: 2015Q3

REPORT INFORMATION
  Report Type: Spontaneous
  Country: US (occurrence: US)
  Receive Date: 20150918
  Receipt Date: 20150918
  Transmission Date: 20151125
  Serious: No
  Sender: FDA-Public Use
  Company Number: US-RB-076310-15

PATIENT

DRUGS (1)
  1. MUCINEX [Suspect]
     Active Substance: GUAIFENESIN
     Indication: NASOPHARYNGITIS
     Dosage: 600MG. PATIENT TOOK AN UNSPECIFIED DOSE ONCE FOR 2 DAYS.,FREQUENCY UNK
     Route: 065
     Dates: start: 20150130

REACTIONS (4)
  - Headache [Unknown]
  - Lethargy [Unknown]
  - Dizziness [Unknown]
  - Insomnia [Unknown]
